FAERS Safety Report 7424825-3 (Version None)
Quarter: 2011Q2

REPORT INFORMATION
  Report Type: 
  Country: None (occurrence: None)
  Receive Date: 20110419
  Receipt Date: 20110405
  Transmission Date: 20111010
  Serious: Yes (Hospitalization, Other)
  Sender: FDA-Public Use
  Company Number: US-CELGENEUS-163-21880-11022630

PATIENT
  Sex: Male

DRUGS (9)
  1. REVLIMID [Suspect]
     Dosage: 25 MILLIGRAM
     Route: 048
     Dates: start: 20110122
  2. ANTIBIOTIC [Concomitant]
     Indication: BRONCHITIS
  3. VELCADE [Concomitant]
     Route: 051
     Dates: start: 20100504, end: 20100630
  4. REVLIMID [Suspect]
     Dosage: 25 MILLIGRAM
     Route: 048
     Dates: start: 20100728, end: 20110120
  5. AREDIA [Concomitant]
     Dosage: 90 MILLIGRAM
     Route: 051
     Dates: start: 20080227, end: 20090812
  6. VELCADE [Concomitant]
     Dosage: 2 MILLIGRAM
     Route: 051
     Dates: start: 20080227, end: 20080620
  7. ANTIBIOTIC [Concomitant]
     Indication: PNEUMONIA
     Route: 065
     Dates: start: 20110119
  8. AREDIA [Concomitant]
     Dosage: 90 MILLIGRAM
     Route: 051
     Dates: start: 20100504
  9. REVLIMID [Suspect]
     Indication: MULTIPLE MYELOMA
     Dosage: 25 MILLIGRAM
     Route: 048
     Dates: start: 20080306, end: 20080813

REACTIONS (5)
  - BRONCHITIS [None]
  - CARDIAC FAILURE CONGESTIVE [None]
  - UPPER RESPIRATORY TRACT INFECTION [None]
  - CARDIOMEGALY [None]
  - RASH [None]
